FAERS Safety Report 12518373 (Version 1)
Quarter: 2016Q2

REPORT INFORMATION
  Report Type: Spontaneous
  Country: CA (occurrence: CA)
  Receive Date: 20160630
  Receipt Date: 20160630
  Transmission Date: 20160815
  Serious: Yes (Other)
  Sender: FDA-Public Use
  Company Number: CA-ASTRAZENECA-2016SE68695

PATIENT
  Age: 48 Year
  Sex: Male
  Weight: 102 kg

DRUGS (4)
  1. RAMIPRIL. [Concomitant]
     Active Substance: RAMIPRIL
  2. ASAPHEN [Concomitant]
     Active Substance: ASPIRIN
  3. METOPROLOL. [Concomitant]
     Active Substance: METOPROLOL
  4. CRESTOR [Suspect]
     Active Substance: ROSUVASTATIN CALCIUM
     Indication: PRODUCT USED FOR UNKNOWN INDICATION
     Route: 048

REACTIONS (1)
  - Lichen planus [Recovered/Resolved]
